FAERS Safety Report 9657351 (Version 1)
Quarter: 2013Q4

REPORT INFORMATION
  Report Type: Spontaneous
  Country: GB (occurrence: GB)
  Receive Date: 20131030
  Receipt Date: 20131030
  Transmission Date: 20140711
  Serious: Yes (Other)
  Sender: FDA-Public Use
  Company Number: GB-GLAXOSMITHKLINE-B0934714A

PATIENT
  Age: 78 Year
  Sex: Female

DRUGS (2)
  1. DICLOFENAC [Suspect]
     Indication: PAIN IN EXTREMITY
     Dosage: 150MG PER DAY
     Route: 048
     Dates: start: 20131001, end: 20131010
  2. RANITIDINE [Suspect]
     Dosage: 300MG PER DAY
     Route: 048
     Dates: start: 20131001, end: 20131010

REACTIONS (4)
  - Angioedema [Not Recovered/Not Resolved]
  - Rash erythematous [Not Recovered/Not Resolved]
  - Rash pruritic [Not Recovered/Not Resolved]
  - Lip swelling [Unknown]
